FAERS Safety Report 9894293 (Version 2)
Quarter: 2014Q1

REPORT INFORMATION
  Report Type: Report from Study
  Country: GB (occurrence: GB)
  Receive Date: 20140213
  Receipt Date: 20140325
  Transmission Date: 20141002
  Serious: Yes (Hospitalization)
  Sender: FDA-Public Use
  Company Number: GB-GLAXOSMITHKLINE-B0967758A

PATIENT
  Age: 23 Year
  Sex: Female
  Weight: 54.2 kg

DRUGS (2)
  1. SERETIDE [Suspect]
     Indication: ASTHMA
     Dosage: 2PUFF TWICE PER DAY
     Route: 065
     Dates: start: 20111129, end: 20140205
  2. SALBUTAMOL [Concomitant]
     Dosage: 2PUFF AS REQUIRED

REACTIONS (3)
  - Lower respiratory tract infection [Recovered/Resolved]
  - Condition aggravated [Recovered/Resolved]
  - Drug ineffective [Unknown]
